FAERS Safety Report 7015814-1 (Version None)
Quarter: 2010Q3

REPORT INFORMATION
  Report Type: 
  Country: None (occurrence: None)
  Receive Date: 20100927
  Receipt Date: 20100526
  Transmission Date: 20110219
  Serious: No
  Sender: FDA-Public Use
  Company Number: US-ASTRAZENECA-2010SE24347

PATIENT
  Age: 24256 Day
  Sex: Female
  Weight: 123.8 kg

DRUGS (1)
  1. ARIMIDEX [Suspect]
     Indication: BREAST CANCER
     Route: 048
     Dates: start: 20080101, end: 20100505

REACTIONS (3)
  - BREAST MASS [None]
  - DRUG DOSE OMISSION [None]
  - MAMMOGRAM ABNORMAL [None]
